FAERS Safety Report 22864614 (Version 3)
Quarter: 2023Q4

REPORT INFORMATION
  Report Type: Spontaneous
  Country: US (occurrence: US)
  Receive Date: 20230825
  Receipt Date: 20231003
  Transmission Date: 20240110
  Serious: No
  Sender: FDA-Public Use
  Company Number: US-GSKCCFUS-Case-01779705_AE-99896

PATIENT
  Sex: Female

DRUGS (1)
  1. BREO ELLIPTA [Suspect]
     Active Substance: FLUTICASONE FUROATE\VILANTEROL TRIFENATATE
     Indication: Product used for unknown indication
     Dosage: UNK 100/25

REACTIONS (5)
  - Asthma [Recovered/Resolved]
  - Wrong technique in device usage process [Unknown]
  - Drug ineffective [Recovered/Resolved]
  - Incorrect dose administered [Unknown]
  - Product complaint [Unknown]
